FAERS Safety Report 17288302 (Version 1)
Quarter: 2020Q1

REPORT INFORMATION
  Report Type: Spontaneous
  Country: CN (occurrence: CN)
  Receive Date: 20200120
  Receipt Date: 20200120
  Transmission Date: 20200409
  Serious: Yes (Other)
  Sender: FDA-Public Use
  Company Number: CN-CHEPLA-C20200329_01

PATIENT
  Age: 38 Year
  Sex: Female

DRUGS (4)
  1. GANCICLOVIR. [Suspect]
     Active Substance: GANCICLOVIR
     Indication: EPSTEIN-BARR VIRAEMIA
     Dosage: 250 MG, EVERY 12 HOURS
  2. IMMUNGLOBULIN [Suspect]
     Active Substance: HUMAN IMMUNOGLOBULIN G
     Route: 042
  3. METHYLPREDNISOLONE. [Suspect]
     Active Substance: METHYLPREDNISOLONE
  4. METHYLPREDNISOLONE. [Suspect]
     Active Substance: METHYLPREDNISOLONE

REACTIONS (5)
  - Condition aggravated [Recovering/Resolving]
  - Rash pruritic [Recovering/Resolving]
  - Product use in unapproved indication [Unknown]
  - Purpura [Recovering/Resolving]
  - Haemophagocytic lymphohistiocytosis [Recovering/Resolving]
